FAERS Safety Report 25230489 (Version 1)
Quarter: 2025Q2

REPORT INFORMATION
  Report Type: Spontaneous
  Country: DE (occurrence: DE)
  Receive Date: 20250423
  Receipt Date: 20250423
  Transmission Date: 20250716
  Serious: Yes (Life-Threatening, Hospitalization)
  Sender: CALLIDITAS THERAPEUTICS AB
  Company Number: DE-DCGMA-24203780

PATIENT
  Age: 62 Year
  Sex: Male
  Weight: 72 kg

DRUGS (4)
  1. BUDESONIDE [Suspect]
     Active Substance: BUDESONIDE
     Indication: IgA nephropathy
     Dates: start: 20240513
  2. Amlodipine;Olmesartan;Rosuvastatin [Concomitant]
     Indication: Hypertension
  3. DAPAGLIFLOZIN [Concomitant]
     Active Substance: DAPAGLIFLOZIN
     Indication: Chronic kidney disease
     Dates: start: 202111
  4. ATORVASTATIN [Concomitant]
     Active Substance: ATORVASTATIN
     Indication: Hypertension
     Dates: start: 202211

REACTIONS (1)
  - Acute myocardial infarction [Unknown]

NARRATIVE: CASE EVENT DATE: 20240723
